FAERS Safety Report 24754426 (Version 4)
Quarter: 2025Q1

REPORT INFORMATION
  Report Type: Spontaneous
  Country: US (occurrence: US)
  Receive Date: 20241219
  Receipt Date: 20250320
  Transmission Date: 20250408
  Serious: Yes (Other)
  Sender: PFIZER
  Company Number: US-PFIZER INC-202400328981

PATIENT
  Age: 77 Year
  Sex: Female
  Weight: 62.132 kg

DRUGS (2)
  1. IBRANCE [Suspect]
     Active Substance: PALBOCICLIB
     Indication: Breast cancer female
     Dosage: 125 MG, DAILY
  2. IBRANCE [Suspect]
     Active Substance: PALBOCICLIB
     Route: 048
     Dates: end: 202501

REACTIONS (4)
  - Neutropenia [Unknown]
  - Cellulitis [Unknown]
  - Peripheral swelling [Unknown]
  - Candida infection [Unknown]
